FAERS Safety Report 25720201 (Version 1)
Quarter: 2025Q3

REPORT INFORMATION
  Report Type: Spontaneous
  Country: EU (occurrence: EU)
  Receive Date: 20250825
  Receipt Date: 20250825
  Transmission Date: 20251021
  Serious: Yes (Other)
  Sender: CHEPLAPHARM
  Company Number: EU-CHEPLA-2025010025

PATIENT
  Age: 57 Year
  Sex: Male

DRUGS (7)
  1. VALGANCICLOVIR [Suspect]
     Active Substance: VALGANCICLOVIR
     Indication: Epstein-Barr virus infection
  2. VALGANCICLOVIR [Suspect]
     Active Substance: VALGANCICLOVIR
     Indication: Cytomegalovirus viraemia
  3. METHOTREXATE [Concomitant]
     Active Substance: METHOTREXATE
  4. PROCARBAZINE [Concomitant]
     Active Substance: PROCARBAZINE
  5. VINCRISTINE [Concomitant]
     Active Substance: VINCRISTINE
  6. PYRIMETHAMINE [Concomitant]
     Active Substance: PYRIMETHAMINE
     Indication: Toxoplasmosis
  7. CLINDAMYCIN [Concomitant]
     Active Substance: CLINDAMYCIN
     Indication: Toxoplasmosis

REACTIONS (3)
  - Hemiplegia [Unknown]
  - Diffuse large B-cell lymphoma [Unknown]
  - Off label use [Unknown]
